FAERS Safety Report 18989957 (Version 1)
Quarter: 2021Q1

REPORT INFORMATION
  Report Type: Spontaneous
  Country: PL (occurrence: PL)
  Receive Date: 20210310
  Receipt Date: 20210310
  Transmission Date: 20210420
  Serious: Yes (Hospitalization)
  Sender: FDA-Public Use
  Company Number: PL-LUPIN PHARMACEUTICALS INC.-2021-02892

PATIENT
  Age: 49 Year
  Sex: Male

DRUGS (14)
  1. AMIKACIN. [Concomitant]
     Active Substance: AMIKACIN
     Indication: ANTIBIOTIC THERAPY
     Dosage: 500 MILLIGRAM, QD
     Route: 065
  2. CYTARABINE. [Concomitant]
     Active Substance: CYTARABINE
     Indication: POST TRANSPLANT LYMPHOPROLIFERATIVE DISORDER
     Dosage: UNK (AS A PART OF R?CODOX AND R?IVAC REGIMEN; 4 CYCLES OF R?CODOX FOLLOWED BY R?IVAC)
     Route: 065
     Dates: start: 20151110, end: 20160218
  3. METHOTREXATE. [Concomitant]
     Active Substance: METHOTREXATE
     Indication: POST TRANSPLANT LYMPHOPROLIFERATIVE DISORDER
     Dosage: UNK (R?IVAC REGIMEN)
     Route: 065
     Dates: start: 20151110, end: 20160218
  4. DOXORUBICIN [Concomitant]
     Active Substance: DOXORUBICIN
     Indication: POST TRANSPLANT LYMPHOPROLIFERATIVE DISORDER
     Dosage: UNK (4 CYCLES OF R?CODOX)
     Route: 065
     Dates: start: 20151110, end: 20160218
  5. IFOSFAMIDE. [Concomitant]
     Active Substance: IFOSFAMIDE
     Indication: POST TRANSPLANT LYMPHOPROLIFERATIVE DISORDER
     Dosage: UNK (R?IVAC REGIMEN)
     Route: 065
     Dates: start: 20151110, end: 20160218
  6. EVEROLIMUS. [Concomitant]
     Active Substance: EVEROLIMUS
     Indication: IMMUNOSUPPRESSANT DRUG THERAPY
     Dosage: UNK
     Route: 065
     Dates: end: 20160218
  7. MYCOPHENOLATE MOFETIL. [Concomitant]
     Active Substance: MYCOPHENOLATE MOFETIL
     Indication: IMMUNOSUPPRESSANT DRUG THERAPY
     Dosage: UNK
     Route: 065
  8. VANCOMYCIN [Suspect]
     Active Substance: VANCOMYCIN
     Indication: ANTIBIOTIC THERAPY
     Dosage: 2 GRAM, TID
     Route: 042
  9. COLISTIN [Concomitant]
     Active Substance: COLISTIN
     Indication: ANTIBIOTIC THERAPY
     Dosage: 2 MILLILITER, TID
     Route: 042
  10. RITUXIMAB. [Concomitant]
     Active Substance: RITUXIMAB
     Indication: POST TRANSPLANT LYMPHOPROLIFERATIVE DISORDER
     Dosage: UNK (AS A PART OF R?CODOX AND R?IVAC REGIMEN; 4 CYCLES OF R?CODOX FOLLOWED BY R?IVAC)
     Route: 065
     Dates: start: 20151110, end: 20160218
  11. CYCLOPHOSPHAMIDE. [Concomitant]
     Active Substance: CYCLOPHOSPHAMIDE
     Indication: POST TRANSPLANT LYMPHOPROLIFERATIVE DISORDER
     Dosage: UNK (4 CYCLES OF R?CODOX)
     Route: 065
     Dates: start: 20151110, end: 20160218
  12. TACROLIMUS. [Concomitant]
     Active Substance: TACROLIMUS
     Indication: IMMUNOSUPPRESSANT DRUG THERAPY
     Dosage: UNK
     Route: 065
     Dates: end: 20160218
  13. VINCRISTINE [Concomitant]
     Active Substance: VINCRISTINE
     Indication: POST TRANSPLANT LYMPHOPROLIFERATIVE DISORDER
     Dosage: UNK (4 CYCLES OF R?CODOX)
     Route: 065
     Dates: start: 20151110, end: 20160218
  14. MEROPENEM. [Concomitant]
     Active Substance: MEROPENEM
     Indication: ANTIBIOTIC THERAPY
     Dosage: 1 GRAM, TID
     Route: 065

REACTIONS (1)
  - Drug ineffective [Unknown]
